FAERS Safety Report 19722951 (Version 1)
Quarter: 2021Q3

REPORT INFORMATION
  Report Type: Report from Study
  Country: None (occurrence: US)
  Receive Date: 20210820
  Receipt Date: 20210820
  Transmission Date: 20211014
  Serious: Yes (Other)
  Sender: FDA-Public Use
  Company Number: US-ABBVIE-21K-163-3991667-00

PATIENT
  Sex: Male

DRUGS (1)
  1. VENCLEXTA [Suspect]
     Active Substance: VENETOCLAX
     Indication: CHRONIC LYMPHOCYTIC LEUKAEMIA
     Route: 048
     Dates: start: 202104

REACTIONS (8)
  - Neutrophil count abnormal [Unknown]
  - SARS-CoV-2 antibody test negative [Unknown]
  - Cancer surgery [Unknown]
  - Platelet count abnormal [Unknown]
  - White blood cell count increased [Unknown]
  - Haemoglobin abnormal [Unknown]
  - Post procedural infection [Unknown]
  - Immunodeficiency [Unknown]

NARRATIVE: CASE EVENT DATE: 2021
